FAERS Safety Report 6725564-4 (Version None)
Quarter: 2010Q2

REPORT INFORMATION
  Report Type: 
  Country: None (occurrence: None)
  Receive Date: 20100514
  Receipt Date: 20100506
  Transmission Date: 20101027
  Serious: Yes (Other)
  Sender: FDA-Public Use
  Company Number: CR-JNJFOC-20100304443

PATIENT
  Age: 9 Year
  Sex: Male

DRUGS (4)
  1. CONCERTA [Suspect]
     Indication: BIPOLAR DISORDER
     Route: 048
  2. CONCERTA [Suspect]
     Route: 048
  3. ALTRODINE [Suspect]
     Indication: DEPRESSION
     Route: 048
  4. ALTRODINE [Suspect]
     Route: 048

REACTIONS (7)
  - ANXIETY [None]
  - BLINDNESS [None]
  - HALLUCINATION [None]
  - HYPERHIDROSIS [None]
  - OFF LABEL USE [None]
  - PARANOIA [None]
  - PSYCHOTIC DISORDER [None]
